FAERS Safety Report 6535040-X (Version None)
Quarter: 2010Q1

REPORT INFORMATION
  Report Type: 
  Country: None (occurrence: None)
  Receive Date: 20100111
  Receipt Date: 20100111
  Transmission Date: 20100710
  Serious: No
  Sender: FDA-Public Use
  Company Number: None

PATIENT
  Age: 55 Year
  Sex: Male
  Weight: 81.6475 kg

DRUGS (2)
  1. METOPROLOL TARTRATE [Suspect]
     Indication: CORONARY ARTERIAL STENT INSERTION
     Dosage: 12.5 MG 1/DAY PO
     Route: 048
     Dates: start: 20080710, end: 20090810
  2. METOPROLOL TARTRATE [Suspect]
     Indication: CORONARY ARTERY OCCLUSION
     Dosage: 12.5 MG 1/DAY PO
     Route: 048
     Dates: start: 20080710, end: 20090810

REACTIONS (2)
  - ARTHRALGIA [None]
  - PEYRONIE'S DISEASE [None]
